FAERS Safety Report 6716498-X (Version None)
Quarter: 2010Q2

REPORT INFORMATION
  Report Type: 
  Country: None (occurrence: None)
  Receive Date: 20100507
  Receipt Date: 20100426
  Transmission Date: 20101027
  Serious: Yes (Hospitalization, Other)
  Sender: FDA-Public Use
  Company Number: CA-ELI_LILLY_AND_COMPANY-CA200912001880

PATIENT
  Sex: Female

DRUGS (20)
  1. FORTEO [Suspect]
     Indication: OSTEOPOROSIS
     Dosage: 20 UG, DAILY (1/D)
     Dates: start: 20080105, end: 20080801
  2. FORTEO [Suspect]
     Dosage: 20 UG, DAILY (1/D)
     Route: 058
     Dates: start: 20091205
  3. PREMARIN [Concomitant]
  4. PROGESTERONE [Concomitant]
  5. BACLOFEN [Concomitant]
  6. GABAPENTIN [Concomitant]
  7. TRAMACET [Concomitant]
  8. TEGRETOL [Concomitant]
  9. CALCIUM                                 /N/A/ [Concomitant]
  10. VITAMIN D [Concomitant]
  11. OVOL [Concomitant]
  12. DICETEL [Concomitant]
  13. ASPIRIN [Concomitant]
  14. TYLENOL                                 /SCH/ [Concomitant]
  15. COLACE [Concomitant]
  16. SENOKOT [Concomitant]
  17. MAALOX /00082501/ [Concomitant]
  18. URSODIOL [Concomitant]
  19. METHOTREXATE [Concomitant]
  20. NOZINAN [Concomitant]

REACTIONS (2)
  - FALL [None]
  - TIBIA FRACTURE [None]
